FAERS Safety Report 18442483 (Version 1)
Quarter: 2020Q4

REPORT INFORMATION
  Report Type: Spontaneous
  Country: AU (occurrence: AU)
  Receive Date: 20201029
  Receipt Date: 20201029
  Transmission Date: 20210114
  Serious: Yes (Hospitalization, Other)
  Sender: FDA-Public Use
  Company Number: AU-BAUSCH-BL-2020-028794

PATIENT
  Age: 69 Year
  Sex: Female

DRUGS (2)
  1. PREDNISOLONE. [Suspect]
     Active Substance: PREDNISOLONE
     Indication: PRODUCT USED FOR UNKNOWN INDICATION
     Route: 065
     Dates: end: 2020
  2. NUCALA [Suspect]
     Active Substance: MEPOLIZUMAB
     Indication: ASTHMA
     Route: 058
     Dates: start: 202001, end: 2020

REACTIONS (4)
  - Post herpetic neuralgia [Recovered/Resolved with Sequelae]
  - Ophthalmic herpes zoster [Unknown]
  - Cellulitis orbital [Unknown]
  - Eye infection [Unknown]

NARRATIVE: CASE EVENT DATE: 2020
